FAERS Safety Report 4584881-7 (Version None)
Quarter: 2005Q1

REPORT INFORMATION
  Report Type: 
  Country: None (occurrence: None)
  Receive Date: 20050217
  Receipt Date: 20041105
  Transmission Date: 20050727
  Serious: No
  Sender: FDA-Public Use
  Company Number: US-GLAXOSMITHKLINE-A0532831A

PATIENT
  Sex: Male

DRUGS (5)
  1. WELLBUTRIN XL [Suspect]
     Indication: DEPRESSION
     Dosage: 300MG PER DAY
     Route: 048
  2. ATENOLOL [Concomitant]
  3. KLONOPIN [Concomitant]
  4. XANAX [Concomitant]
  5. LUVOX [Concomitant]

REACTIONS (1)
  - BLOOD PRESSURE INCREASED [None]
